FAERS Safety Report 8485746-0 (Version None)
Quarter: 2012Q3

REPORT INFORMATION
  Report Type: 
  Country: None (occurrence: None)
  Receive Date: 20120703
  Receipt Date: 20120622
  Transmission Date: 20120928
  Serious: Yes (Hospitalization)
  Sender: FDA-Public Use
  Company Number: IN-ROCHE-784642

PATIENT
  Sex: Female
  Weight: 64 kg

DRUGS (14)
  1. ALCOHOL [Concomitant]
  2. ZOMETA [Concomitant]
     Dates: start: 20110220
  3. LINSEED [Concomitant]
     Dosage: DRUG: LINSEED OIL
  4. MENTHOL [Concomitant]
  5. GENERIC COMPONENT(S) NOT KNOWN [Concomitant]
  6. VITAMINS AND MINERALS [Concomitant]
  7. TRAMADOL HCL [Concomitant]
  8. XELODA [Suspect]
     Dosage: CYCLICAL,FILM-COATED TABLET DATE OF LAST DOSE: 31/MAY/2011
     Route: 048
  9. SHELCAL [Concomitant]
     Dates: start: 20110608, end: 20110709
  10. XELODA [Suspect]
     Indication: BREAST CANCER
     Dosage: CYCLICAL CAPECITABINE (CAPECITABINE) FILM-COATED TABLET
     Route: 048
     Dates: start: 20110427, end: 20110531
  11. XELODA [Suspect]
     Dosage: DOSE DELAYED AND REDUCED
  12. DICLOFENAC DIETHYLAMINE [Concomitant]
  13. ACETAMINOPHEN [Concomitant]
  14. METHYL SALICYLATE [Concomitant]

REACTIONS (3)
  - HYPOALBUMINAEMIA [None]
  - DIARRHOEA [None]
  - ANAEMIA [None]
